FAERS Safety Report 4957970-2 (Version None)
Quarter: 2006Q1

REPORT INFORMATION
  Report Type: 
  Country: None (occurrence: None)
  Receive Date: 20060330
  Receipt Date: 20051020
  Transmission Date: 20060701
  Serious: Yes (Hospitalization)
  Sender: FDA-Public Use
  Company Number: US-MERCK-0510USA08412

PATIENT
  Age: 64 Year
  Sex: Male
  Weight: 90 kg

DRUGS (23)
  1. VIOXX [Suspect]
     Indication: RHEUMATOID ARTHRITIS
     Route: 048
     Dates: start: 20001017, end: 20031104
  2. COUMADIN [Concomitant]
     Route: 048
  3. XANAX [Concomitant]
     Route: 048
  4. [THERAPY UNSPECIFIED] [Concomitant]
     Route: 065
  5. [THERAPY UNSPECIFIED] [Concomitant]
     Route: 065
  6. PAXIL [Concomitant]
     Indication: DEPRESSION
     Route: 065
  7. ZANTAC [Concomitant]
     Indication: GASTROOESOPHAGEAL REFLUX DISEASE
     Route: 065
  8. METOPROLOL [Concomitant]
     Indication: HYPERTENSION
     Route: 065
  9. METOPROLOL [Concomitant]
     Indication: CHEST PAIN
     Route: 065
  10. ISOSORBIDE MONONITRATE [Concomitant]
     Indication: CHEST PAIN
     Route: 065
  11. K-DUR 10 [Concomitant]
     Indication: ELECTROLYTE SUBSTITUTION THERAPY
     Route: 065
  12. LASIX [Concomitant]
     Indication: HYPERTENSION
     Route: 065
  13. LASIX [Concomitant]
     Indication: SWELLING
     Route: 065
  14. HYDRODIURIL [Concomitant]
     Indication: HYPERTENSION
     Route: 048
  15. HYDRODIURIL [Concomitant]
     Indication: SWELLING
     Route: 048
  16. ALPRAZOLAM [Concomitant]
     Indication: ANXIETY
     Route: 065
  17. COREG [Concomitant]
     Indication: HYPERTENSION
     Route: 065
  18. LANOXIN [Concomitant]
     Indication: ATRIAL FLUTTER
     Route: 065
  19. AMIODARONE MSD [Concomitant]
     Indication: ATRIAL FLUTTER
     Route: 048
  20. HYDROCODONE BITARTRATE [Concomitant]
     Indication: PAIN
     Route: 065
  21. UNIRETIC [Concomitant]
     Indication: HYPERTENSION
     Route: 065
  22. SKELAXIN [Concomitant]
     Indication: MUSCLE RELAXANT THERAPY
     Route: 065
  23. NORVASC [Concomitant]
     Indication: HYPERTENSION
     Route: 065

REACTIONS (34)
  - ABASIA [None]
  - ANXIETY [None]
  - AORTIC CALCIFICATION [None]
  - ARRHYTHMIA [None]
  - ASTHENIA [None]
  - ATRIAL FLUTTER [None]
  - CARDIOMEGALY [None]
  - CARDIOMYOPATHY [None]
  - CARDIOVERSION [None]
  - CEREBRAL INFARCTION [None]
  - CEREBROVASCULAR ACCIDENT [None]
  - CHEST PAIN [None]
  - CORONARY ARTERY DISEASE [None]
  - CORONARY ARTERY OCCLUSION [None]
  - DIASTOLIC DYSFUNCTION [None]
  - DILATATION ATRIAL [None]
  - DILATATION VENTRICULAR [None]
  - DYSPNOEA [None]
  - DYSPNOEA EXERTIONAL [None]
  - EMOTIONAL DISTRESS [None]
  - HEART RATE IRREGULAR [None]
  - HEMIPARESIS [None]
  - HYPERLIPIDAEMIA [None]
  - HYPERTENSION [None]
  - HYPOAESTHESIA [None]
  - LACUNAR INFARCTION [None]
  - MITRAL VALVE INCOMPETENCE [None]
  - POLYTRAUMATISM [None]
  - PYREXIA [None]
  - ROAD TRAFFIC ACCIDENT [None]
  - SUPRAVENTRICULAR TACHYCARDIA [None]
  - THROMBOSIS [None]
  - TRICUSPID VALVE INCOMPETENCE [None]
  - VENTRICULAR HYPERTROPHY [None]
